FAERS Safety Report 9275887 (Version 3)
Quarter: 2013Q2

REPORT INFORMATION
  Report Type: Report from Study
  Country: FR (occurrence: FR)
  Receive Date: 20130507
  Receipt Date: 20130619
  Transmission Date: 20140414
  Serious: Yes (Death, Hospitalization)
  Sender: FDA-Public Use
  Company Number: FR-PFIZER INC-2013138297

PATIENT
  Age: 73 Year
  Sex: Male
  Weight: 87 kg

DRUGS (8)
  1. SIROLIMUS [Suspect]
     Indication: SKIN CANCER
     Dosage: 1 MG, ALTERNATE DAY
     Route: 048
     Dates: start: 20100517
  2. ZYLORIC [Concomitant]
     Dosage: 300 MG, UNK
     Route: 048
     Dates: start: 19961231
  3. OROCAL D3 [Concomitant]
     Dosage: 1 DF, UNK
     Route: 048
     Dates: start: 19961025
  4. COZAAR [Concomitant]
     Dosage: 75 MG, UNK
     Route: 048
     Dates: start: 2000
  5. ZOCOR [Concomitant]
     Dosage: 20 MG, UNK
     Route: 048
     Dates: start: 1997
  6. LASILIX [Concomitant]
     Dosage: 40 MG, UNK
     Route: 048
     Dates: start: 20060711
  7. MIRCERA [Concomitant]
     Dosage: 200 UG MONTHLY
     Route: 058
     Dates: start: 20110510
  8. SODIUM BICARBONATE [Concomitant]
     Dosage: 3 G DAILY
     Route: 048
     Dates: start: 20110510

REACTIONS (4)
  - Sepsis [Fatal]
  - Pancreatic carcinoma [Unknown]
  - Metastases to lung [Unknown]
  - Jaundice cholestatic [Unknown]
